FAERS Safety Report 16628288 (Version 3)
Quarter: 2019Q3

REPORT INFORMATION
  Report Type: Spontaneous
  Country: JP (occurrence: JP)
  Receive Date: 20190724
  Receipt Date: 20190905
  Transmission Date: 20191004
  Serious: Yes (Death, Other)
  Sender: FDA-Public Use
  Company Number: JP-AMGEN-JPNSP2019116687

PATIENT
  Age: 77 Year
  Sex: Female
  Weight: 72 kg

DRUGS (16)
  1. EVENITY [Suspect]
     Active Substance: ROMOSOZUMAB-AQQG
  2. FOSRENOL [Concomitant]
     Active Substance: LANTHANUM CARBONATE
     Dosage: 750 MILLIGRAM, TID, IMMEDIATELY AFTER BREAKFAST, LUNCH, DINNER
  3. CALTAN [Concomitant]
     Active Substance: CALCIUM CARBONATE
     Dosage: 500 MILLIGRAM, TID, IMMEDIATELY AFTER BREAKFAST, LUNCH, DINNER
  4. BAYASPIRIN [Concomitant]
     Active Substance: ASPIRIN
     Dosage: 100 MILLIGRAM, QD, IMMEDIATELY AFTER DINNER
  5. EVENITY [Suspect]
     Active Substance: ROMOSOZUMAB-AQQG
     Indication: OSTEOPOROSIS
     Dosage: 210 MILLIGRAM
     Route: 058
     Dates: start: 20190314
  6. TETRAMIDE [Concomitant]
     Active Substance: MIANSERIN
     Dosage: 10 MILLIGRAM, QD, BEFORE BEDTIME
  7. LIPITOR [Concomitant]
     Active Substance: ATORVASTATIN CALCIUM
     Dosage: 10 MILLIGRAM, QD, IMMEDIATELY AFTER DINNER
  8. TAKECAB [Concomitant]
     Active Substance: VONOPRAZAN FUMURATE
     Dosage: 10 MILLIGRAM, QD, IMMEDIATELY AFTER DINNER
  9. SINGULAIR [Concomitant]
     Active Substance: MONTELUKAST SODIUM
     Dosage: 10 MILLIGRAM, QD, IMMEDIATELY AFTER DINNER
  10. LINZESS [Concomitant]
     Active Substance: LINACLOTIDE
     Dosage: 0.50 MILLIGRAM, QD, BEFORE BREAKFAST
  11. LYRICA [Concomitant]
     Active Substance: PREGABALIN
     Dosage: 25 MILLIGRAM, QD, IMMEDIATELY AFTER DINNER
  12. ALOSENN [SENNA SPP.] [Concomitant]
     Dosage: 4 SACHET, ONCE DAILY BEFORE BREAKFAST
  13. PRALIA [Suspect]
     Active Substance: DENOSUMAB
     Indication: PRODUCT USED FOR UNKNOWN INDICATION
     Dosage: UNK
     Route: 065
     Dates: start: 20180913
  14. ANPLAG [Concomitant]
     Active Substance: SARPOGRELATE
     Dosage: 100 MILLIGRAM, TID, IMMEDIATELY AFTER BREAKFAST, LUNCH, DINNER
  15. ARTIST [Concomitant]
     Active Substance: CARVEDILOL
     Dosage: 2.5 MILLIGRAM, QD, IMMEDIATELY AFTER DINNER
  16. CELECOX [Concomitant]
     Active Substance: CELECOXIB
     Dosage: 100 MILLIGRAM, ONCE DAILY AFTER DINNER

REACTIONS (2)
  - Cardiac arrest [Fatal]
  - Deep vein thrombosis [Unknown]

NARRATIVE: CASE EVENT DATE: 201906
